FAERS Safety Report 24009226 (Version 1)
Quarter: 2024Q2

REPORT INFORMATION
  Report Type: Other
  Country: DE (occurrence: DE)
  Receive Date: 20240625
  Receipt Date: 20240625
  Transmission Date: 20240716
  Serious: Yes (Congenital Anomaly)
  Sender: FDA-Public Use
  Company Number: DE-EMBRYOTOX-202307987

PATIENT

DRUGS (7)
  1. ESCITALOPRAM [Suspect]
     Active Substance: ESCITALOPRAM OXALATE
     Indication: Product used for unknown indication
     Dosage: INCREASED IN THE COURSE OF PREGNANCY FROM 15 TO 20 MG/D
     Route: 064
     Dates: start: 20230605
  2. ESCITALOPRAM [Suspect]
     Active Substance: ESCITALOPRAM OXALATE
     Dosage: INCREASED IN THE COURSE OF PREGNANCY FROM 15 TO 20 MG/D
     Route: 064
     Dates: end: 20240227
  3. IBUPROFEN [Suspect]
     Active Substance: IBUPROFEN
     Indication: Product used for unknown indication
     Dosage: 1-2 PER WEEK AGAINST MIGRAINE AND HEADACHE, 0 TO20 GESTATIONAL WEEK
     Route: 064
  4. ACETAMINOPHEN [Suspect]
     Active Substance: ACETAMINOPHEN
     Indication: Product used for unknown indication
     Dosage: 1000 MG/D 1-2X PER WEEK
     Route: 064
  5. PROMETHAZINE [Suspect]
     Active Substance: PROMETHAZINE HYDROCHLORIDE
     Indication: Panic attack
     Dosage: 28.4 FOR AT LEAST 3 WEEKS, STOPPED BECAUSE O
     Route: 064
  6. TAVOR (LORAZEPAM) [Suspect]
     Active Substance: LORAZEPAM
     Indication: Product used for unknown indication
     Dosage: 0.5-1 MG TWICE A WEEK
     Route: 064
  7. CALCIUM CARBONATE\MAGNESIUM CARBONATE [Suspect]
     Active Substance: CALCIUM CARBONATE\MAGNESIUM CARBONATE
     Indication: Product used for unknown indication
     Dosage: NEEDED ALMOST DAILY
     Route: 064

REACTIONS (4)
  - Atrial septal defect [Recovering/Resolving]
  - Mitral valve incompetence [Unknown]
  - Ventricular septal defect [Recovering/Resolving]
  - Foetal exposure during pregnancy [Unknown]
